FAERS Safety Report 5241418-7 (Version None)
Quarter: 2007Q1

REPORT INFORMATION
  Report Type: 
  Country: None (occurrence: None)
  Receive Date: 20070220
  Receipt Date: 20070212
  Transmission Date: 20070707
  Serious: Yes (Disabling)
  Sender: FDA-Public Use
  Company Number: 2007AC00246

PATIENT
  Age: 56 Year
  Sex: Female
  Weight: 74 kg

DRUGS (11)
  1. SELOKEEN ZOC [Suspect]
     Indication: CARDIAC FAILURE
     Route: 048
     Dates: start: 20030201
  2. CORDARONE [Suspect]
     Indication: ATRIAL FIBRILLATION
     Dates: start: 20030601
  3. CORDARONE [Suspect]
     Dates: start: 20061201
  4. NEWACE [Suspect]
     Indication: CARDIAC FAILURE
     Dates: start: 20030201
  5. NEWACE [Suspect]
  6. BUMETANIDE [Suspect]
     Indication: CARDIAC FAILURE
     Dates: start: 20030201
  7. BUMETANIDE [Suspect]
  8. SPIRONOLACTONE [Suspect]
     Indication: CARDIAC FAILURE
     Dates: start: 20041201
  9. SPIRONOLACTONE [Suspect]
  10. ACENOCOUMAROL [Concomitant]
     Dates: start: 20030201
  11. CRESTOR [Concomitant]
     Route: 048
     Dates: start: 20040101

REACTIONS (6)
  - DRY MOUTH [None]
  - HEADACHE [None]
  - MEMORY IMPAIRMENT [None]
  - PHOTOPHOBIA [None]
  - PHOTOSENSITIVITY REACTION [None]
  - SKIN DISCOLOURATION [None]
